FAERS Safety Report 6785264-1 (Version None)
Quarter: 2010Q2

REPORT INFORMATION
  Report Type: 
  Country: None (occurrence: None)
  Receive Date: 20100623
  Receipt Date: 20100609
  Transmission Date: 20101027
  Serious: Yes (Other)
  Sender: FDA-Public Use
  Company Number: GB-RANBAXY-2010RR-34890

PATIENT

DRUGS (1)
  1. PARACETAMOL [Suspect]

REACTIONS (1)
  - HEPATOTOXICITY [None]
